FAERS Safety Report 15871358 (Version 1)
Quarter: 2019Q1

REPORT INFORMATION
  Report Type: Spontaneous
  Country: US (occurrence: US)
  Receive Date: 20190126
  Receipt Date: 20190126
  Transmission Date: 20190417
  Serious: No
  Sender: FDA-Public Use
  Company Number: US-TEVA-2018-US-994086

PATIENT
  Sex: Female

DRUGS (2)
  1. MICONAZOLE 3 COMBINATION PACK [Suspect]
     Active Substance: MICONAZOLE NITRATE
     Indication: VULVOVAGINAL MYCOTIC INFECTION
     Dosage: FORM STRENGTH:200 MG / 2 %
     Route: 067
     Dates: start: 20181224
  2. MICONAZOLE 3 COMBINATION PACK [Suspect]
     Active Substance: MICONAZOLE NITRATE
     Dosage: FORM STRENGTH:200 MG / 2 %
     Route: 067
     Dates: start: 20181224

REACTIONS (2)
  - Product dispensing error [Unknown]
  - Drug effect incomplete [Unknown]
